FAERS Safety Report 8619586-6 (Version None)
Quarter: 2012Q3

REPORT INFORMATION
  Report Type: 
  Country: None (occurrence: None)
  Receive Date: 20120824
  Receipt Date: 20120419
  Transmission Date: 20120928
  Serious: No
  Sender: FDA-Public Use
  Company Number: US-ASTRAZENECA-2012SE25746

PATIENT
  Sex: Female

DRUGS (2)
  1. SYMBICORT [Suspect]
     Indication: ASTHMA
     Dosage: 80/4.5 MCG, 1 PUFF TWO TIMES A DAY
     Route: 055
  2. SYMBICORT [Suspect]
     Dosage: 80/4.5 MCG, 2 PUFF TWO TIMES A DAY
     Route: 055

REACTIONS (5)
  - OFF LABEL USE [None]
  - ACTIVITIES OF DAILY LIVING IMPAIRED [None]
  - PAIN [None]
  - GAIT DISTURBANCE [None]
  - AGITATION [None]
